FAERS Safety Report 7313572-4 (Version None)
Quarter: 2011Q1

REPORT INFORMATION
  Report Type: 
  Country: None (occurrence: None)
  Receive Date: 20110215
  Receipt Date: 20110215
  Transmission Date: 20110831
  Serious: No
  Sender: FDA-Public Use
  Company Number: None

PATIENT
  Age: 74 Year
  Sex: Female
  Weight: 58.9676 kg

DRUGS (1)
  1. NEURONTIN [Suspect]
     Indication: SCIATICA
     Dosage: ONE PILL FOR THREE DAYS THREE TIMES A DAT.
     Dates: start: 20101130, end: 20101208

REACTIONS (1)
  - NERVE INJURY [None]
